FAERS Safety Report 4760797-8 (Version None)
Quarter: 2005Q3

REPORT INFORMATION
  Report Type: 
  Country: None (occurrence: None)
  Receive Date: 20050901
  Receipt Date: 20050819
  Transmission Date: 20060218
  Serious: Yes (Death)
  Sender: FDA-Public Use
  Company Number: 2005BI010649

PATIENT
  Age: 54 Year
  Sex: Female

DRUGS (3)
  1. AVONEX [Suspect]
     Indication: MULTIPLE SCLEROSIS
     Dosage: 30 UG; QW; IM
     Route: 030
     Dates: start: 20050525, end: 20050525
  2. ASPIRIN [Concomitant]
  3. PAXIL [Concomitant]

REACTIONS (10)
  - ADHESION [None]
  - CHOLELITHIASIS [None]
  - CONTUSION [None]
  - CORONARY ARTERY ATHEROSCLEROSIS [None]
  - CORONARY ARTERY STENOSIS [None]
  - LIVER DISORDER [None]
  - METASTASES TO LYMPH NODES [None]
  - MYOCARDIAL ISCHAEMIA [None]
  - PULMONARY ARTERY THROMBOSIS [None]
  - SMALL CELL LUNG CANCER STAGE UNSPECIFIED [None]
